FAERS Safety Report 4608411-6 (Version None)
Quarter: 2005Q1

REPORT INFORMATION
  Report Type: 
  Country: None (occurrence: None)
  Receive Date: 20050311
  Receipt Date: 20050311
  Transmission Date: 20050727
  Serious: Yes (Hospitalization)
  Sender: FDA-Public Use
  Company Number: None

PATIENT
  Age: 78 Year
  Sex: Male
  Weight: 65.9 kg

DRUGS (3)
  1. SPIRONOLACTONE 25MG TAB [Suspect]
     Indication: HYPERKALAEMIA
     Dosage: 25 MG PO QD
     Route: 048
     Dates: start: 20041115, end: 20041116
  2. KCL 20 MEQ PO QD [Suspect]
     Indication: HYPERKALAEMIA
     Dosage: 20 MEQ PO QD
     Route: 048
     Dates: start: 20041112, end: 20041116
  3. LISINOPRIL [Concomitant]

REACTIONS (3)
  - CARDIAC FAILURE CONGESTIVE [None]
  - CONDITION AGGRAVATED [None]
  - HYPERKALAEMIA [None]
